FAERS Safety Report 4655974-0 (Version None)
Quarter: 2005Q2

REPORT INFORMATION
  Report Type: 
  Country: None (occurrence: None)
  Receive Date: 20050505
  Receipt Date: 20050428
  Transmission Date: 20051028
  Serious: Yes (Hospitalization, Other)
  Sender: FDA-Public Use
  Company Number: 2003-12-0666

PATIENT
  Age: 54 Year
  Sex: Male
  Weight: 69 kg

DRUGS (11)
  1. INTRON A [Suspect]
     Indication: HEPATITIS C
     Dosage: 6 MU QD TIW INTRAMUSCULAR
     Route: 030
     Dates: start: 20030328, end: 20030411
  2. INTRON A [Suspect]
     Indication: HEPATITIS C
     Dosage: 6 MU QD TIW INTRAMUSCULAR
     Route: 030
     Dates: start: 20030328, end: 20030914
  3. INTRON A [Suspect]
     Indication: HEPATITIS C
     Dosage: 6 MU QD TIW INTRAMUSCULAR
     Route: 030
     Dates: start: 20030416, end: 20030914
  4. REBETOL [Suspect]
     Indication: HEPATITIS C
     Dosage: 800-400 MG ORAL
     Route: 048
     Dates: start: 20030328, end: 20030414
  5. REBETOL [Suspect]
     Indication: HEPATITIS C
     Dosage: 800-400 MG ORAL
     Route: 048
     Dates: start: 20030417, end: 20030603
  6. REBETOL [Suspect]
     Indication: HEPATITIS C
     Dosage: 800-400 MG ORAL
     Route: 048
     Dates: start: 20030604, end: 20030617
  7. REBETOL [Suspect]
     Indication: HEPATITIS C
     Dosage: 800-400 MG ORAL
     Route: 048
     Dates: start: 20030328, end: 20030914
  8. REBETOL [Suspect]
     Indication: HEPATITIS C
     Dosage: 800-400 MG ORAL
     Route: 048
     Dates: start: 20030618, end: 20030914
  9. NORVASC [Concomitant]
  10. IMIDAPRIL HCL [Concomitant]
  11. GASTER [Concomitant]

REACTIONS (6)
  - ANOREXIA [None]
  - DRUG INEFFECTIVE [None]
  - HEADACHE [None]
  - INTRACRANIAL HYPOTENSION [None]
  - NAUSEA [None]
  - PHYSICAL EXAMINATION ABNORMAL [None]
